FAERS Safety Report 11010992 (Version 1)
Quarter: 2015Q2

REPORT INFORMATION
  Report Type: Spontaneous
  Country: US (occurrence: US)
  Receive Date: 20150410
  Receipt Date: 20150410
  Transmission Date: 20150821
  Serious: Yes (Other)
  Sender: FDA-Public Use
  Company Number: US-DSJP-DSU-2015-111289

PATIENT

DRUGS (1)
  1. BENICAR HCT [Suspect]
     Active Substance: HYDROCHLOROTHIAZIDE\OLMESARTAN MEDOXOMIL
     Indication: PRODUCT USED FOR UNKNOWN INDICATION
     Dosage: 40/12.5MG, UNK
     Route: 048

REACTIONS (9)
  - Knee arthroplasty [Unknown]
  - Hypertension [Unknown]
  - Blood cholesterol increased [Unknown]
  - Spinal fusion surgery [Unknown]
  - Restless legs syndrome [Unknown]
  - Osteopenia [Unknown]
  - Stent placement [Unknown]
  - Bladder prolapse [Unknown]
  - Rash [Unknown]

NARRATIVE: CASE EVENT DATE: 2007
